FAERS Safety Report 8997266 (Version 2)
Quarter: 2014Q1

REPORT INFORMATION
  Report Type: Spontaneous
  Country: US (occurrence: US)
  Receive Date: 20130104
  Receipt Date: 20140123
  Transmission Date: 20141002
  Serious: Yes (Other)
  Sender: FDA-Public Use
  Company Number: US-PFIZER INC-2013002270

PATIENT
  Age: 54 Year
  Sex: Male

DRUGS (7)
  1. EFFEXOR [Suspect]
     Dosage: UNK
  2. EFFEXOR XR [Suspect]
     Dosage: 150 MG, 1X/DAY
     Route: 048
  3. EFFEXOR XR [Suspect]
     Dosage: 75 MG, 3X/DAY
     Route: 048
  4. NEURONTIN [Concomitant]
     Dosage: UNK
  5. ZOLOFT [Concomitant]
     Dosage: UNK
  6. XANAX [Concomitant]
     Dosage: UNK
  7. TRIAVIL [Concomitant]
     Dosage: UNK

REACTIONS (3)
  - Depression [Not Recovered/Not Resolved]
  - Obsessive-compulsive disorder [Recovering/Resolving]
  - Therapeutic response unexpected [Unknown]
